FAERS Safety Report 6282245-1 (Version None)
Quarter: 2009Q3

REPORT INFORMATION
  Report Type: 
  Country: None (occurrence: None)
  Receive Date: 20090724
  Receipt Date: 20090701
  Transmission Date: 20100115
  Serious: Yes (Hospitalization)
  Sender: FDA-Public Use
  Company Number: CN-BAYER-200924047GPV

PATIENT
  Age: 76 Year
  Sex: Male

DRUGS (1)
  1. AVELOX [Suspect]
     Indication: BRONCHITIS
     Dosage: TOTAL DAILY DOSE: 400 MG
     Route: 042
     Dates: start: 20080101, end: 20080101

REACTIONS (4)
  - AGITATION [None]
  - CONVULSION [None]
  - NERVOUS SYSTEM DISORDER [None]
  - PRURITUS GENERALISED [None]
